FAERS Safety Report 9783074 (Version 1)
Quarter: 2013Q4

REPORT INFORMATION
  Report Type: Spontaneous
  Country: US (occurrence: US)
  Receive Date: 20131226
  Receipt Date: 20131226
  Transmission Date: 20140711
  Serious: Yes (Other)
  Sender: FDA-Public Use
  Company Number: US-BAYER-2013-154578

PATIENT
  Age: 71 Year
  Sex: Female
  Weight: 83.9 kg

DRUGS (2)
  1. ALEVE CAPLET [Suspect]
     Route: 048
  2. TYVASO [Concomitant]

REACTIONS (1)
  - Renal failure [None]
